FAERS Safety Report 7231227-1 (Version None)
Quarter: 2011Q1

REPORT INFORMATION
  Report Type: 
  Country: None (occurrence: None)
  Receive Date: 20110118
  Receipt Date: 20110112
  Transmission Date: 20110831
  Serious: Yes (Other)
  Sender: FDA-Public Use
  Company Number: B0691095A

PATIENT
  Sex: Female

DRUGS (5)
  1. HALCION [Concomitant]
     Dosage: .5MG PER DAY
     Route: 048
     Dates: start: 20090113, end: 20101215
  2. PAXIL [Suspect]
     Indication: SOCIAL PHOBIA
     Dosage: 40MG PER DAY
     Route: 048
     Dates: start: 20100202, end: 20101215
  3. DEPAS [Concomitant]
     Dosage: 2MG PER DAY
     Route: 048
     Dates: start: 20090113, end: 20101215
  4. LUVOX [Suspect]
     Dosage: 150MG PER DAY
     Route: 048
     Dates: start: 20090113, end: 20101215
  5. ZOLOFT [Suspect]
     Dosage: 50MG PER DAY
     Route: 048
     Dates: start: 20090908, end: 20101215

REACTIONS (1)
  - LOSS OF CONSCIOUSNESS [None]
